FAERS Safety Report 19105398 (Version 3)
Quarter: 2021Q2

REPORT INFORMATION
  Report Type: Spontaneous
  Country: US (occurrence: US)
  Receive Date: 20210407
  Receipt Date: 20210623
  Transmission Date: 20210717
  Serious: Yes (Disabling, Other)
  Sender: FDA-Public Use
  Company Number: US-PFIZER INC-2021358525

PATIENT
  Age: 60 Year
  Sex: Female

DRUGS (1)
  1. RELPAX [Suspect]
     Active Substance: ELETRIPTAN HYDROBROMIDE
     Indication: MIGRAINE
     Dosage: UNK
     Dates: end: 2020

REACTIONS (5)
  - Speech disorder [Unknown]
  - Vomiting [Unknown]
  - Illness [Unknown]
  - Visual impairment [Unknown]
  - Dysstasia [Unknown]

NARRATIVE: CASE EVENT DATE: 20210329
